FAERS Safety Report 5373262-4 (Version None)
Quarter: 2007Q2

REPORT INFORMATION
  Report Type: 
  Country: None (occurrence: None)
  Receive Date: 20070626
  Receipt Date: 20070626
  Transmission Date: 20071010
  Serious: Yes (Death)
  Sender: FDA-Public Use
  Company Number: None

PATIENT
  Age: 88 Year
  Sex: Male
  Weight: 70 kg

DRUGS (1)
  1. EPREX [Suspect]
     Indication: ANAEMIA
     Dosage: 10000 U.I. 3/WEEK ID
     Dates: start: 20061015, end: 20061028

REACTIONS (3)
  - MEDICATION ERROR [None]
  - OVERDOSE [None]
  - UNEVALUABLE EVENT [None]
